FAERS Safety Report 9009650 (Version 1)
Quarter: 2013Q1

REPORT INFORMATION
  Report Type: Spontaneous
  Country: IT (occurrence: IT)
  Receive Date: 20130110
  Receipt Date: 20130110
  Transmission Date: 20140127
  Serious: Yes (Other)
  Sender: FDA-Public Use
  Company Number: IT-PERRIGO-12IT011206

PATIENT
  Sex: Male
  Weight: 2.24 kg

DRUGS (6)
  1. MORPHINE SULFATE [Suspect]
     Indication: NEONATAL COMPLICATIONS OF SUBSTANCE ABUSE
     Dosage: 0.5 MG/KG/24H, Q6H
     Route: 048
  2. MORPHINE SULFATE [Suspect]
     Dosage: 0.7 MG/KG/24H, UNKNOWN
     Route: 048
  3. MORPHINE SULFATE [Suspect]
     Dosage: 0.6 MG/KG/24H, UNKNOWN
     Route: 048
  4. MORPHINE SULFATE [Suspect]
     Dosage: 0.4 MG/KG/24H, Q8H
     Route: 048
  5. MORPHINE SULFATE [Suspect]
     Dosage: 0.3 MG/KG/24H, UNKNOWN
     Route: 048
  6. ZIDOVUDINE [Concomitant]
     Indication: PROPHYLAXIS AGAINST HIV INFECTION
     Dosage: UNKNOWN, UNKNOWN
     Route: 048

REACTIONS (6)
  - Renal failure acute [Recovered/Resolved]
  - Hydronephrosis [Recovered/Resolved]
  - Hypotonia [Recovered/Resolved]
  - Abdominal distension [Recovered/Resolved]
  - Bladder dilatation [Recovered/Resolved]
  - Lethargy [Recovered/Resolved]
